FAERS Safety Report 24669080 (Version 2)
Quarter: 2024Q4

REPORT INFORMATION
  Report Type: Report from Study
  Country: KR (occurrence: KR)
  Receive Date: 20241127
  Receipt Date: 20241218
  Transmission Date: 20250114
  Serious: Yes (Other)
  Sender: AMGEN
  Company Number: KR-AMGEN-KORNI2024230858

PATIENT
  Age: 79 Year
  Sex: Female

DRUGS (7)
  1. ROMOSOZUMAB [Suspect]
     Active Substance: ROMOSOZUMAB
     Indication: Osteoporosis
     Dosage: 210 UNK, QMO
     Route: 058
     Dates: start: 20231208
  2. DICAMAX [Concomitant]
     Dosage: 1 UNK, QD
     Route: 048
     Dates: start: 20231208
  3. CILOSTAN CR [Concomitant]
     Dosage: 1 UNK, QD
     Route: 048
     Dates: start: 20190514, end: 20190618
  4. GASTIIN CR [Concomitant]
     Dosage: 1 UNK, QD
     Route: 048
     Dates: start: 20190514, end: 20190618
  5. MOBIC [Concomitant]
     Active Substance: MELOXICAM
     Dosage: 1 UNK, QD
     Route: 048
     Dates: start: 20190510, end: 20190609
  6. ROUTINES [Concomitant]
     Dosage: 0.5 UNK, BID
     Route: 048
     Dates: start: 20190510, end: 20190609
  7. ULTRACET ER SEMI [Concomitant]
     Dosage: 0.5 UNK, BID
     Route: 048
     Dates: start: 20190510, end: 20190609

REACTIONS (1)
  - Osteoporotic fracture [Recovering/Resolving]

NARRATIVE: CASE EVENT DATE: 20240701
